FAERS Safety Report 7451093-9 (Version None)
Quarter: 2011Q2

REPORT INFORMATION
  Report Type: 
  Country: None (occurrence: None)
  Receive Date: 20110422
  Receipt Date: 20110407
  Transmission Date: 20111010
  Serious: Yes (Hospitalization)
  Sender: FDA-Public Use
  Company Number: SPI201100087

PATIENT
  Age: 76 Year
  Sex: Female

DRUGS (1)
  1. AMITIZA [Suspect]
     Indication: CONSTIPATION
     Dosage: ORAL ; 24 MCG, QD, ORAL
     Route: 048
     Dates: start: 20090101

REACTIONS (2)
  - DYSPNOEA [None]
  - CHEST PAIN [None]
